FAERS Safety Report 20440403 (Version 1)
Quarter: 2022Q1

REPORT INFORMATION
  Report Type: Spontaneous
  Country: PL (occurrence: PL)
  Receive Date: 20220207
  Receipt Date: 20220207
  Transmission Date: 20220424
  Serious: Yes (Hospitalization)
  Sender: FDA-Public Use
  Company Number: PL-BEXIMCO-2022BEX00005

PATIENT
  Age: 30 Year
  Sex: Female

DRUGS (4)
  1. FLECAINIDE ACETATE [Suspect]
     Active Substance: FLECAINIDE ACETATE
     Indication: Atrial tachycardia
     Dosage: 120 MG, ONCE
     Route: 042
  2. METOPROLOL [Concomitant]
     Active Substance: METOPROLOL
     Route: 065
  3. METOPROLOL [Concomitant]
     Active Substance: METOPROLOL
     Dosage: 20 MG
     Route: 042
  4. VERAPAMIL [Concomitant]
     Active Substance: VERAPAMIL HYDROCHLORIDE
     Route: 065

REACTIONS (1)
  - Stress cardiomyopathy [Recovered/Resolved]
